FAERS Safety Report 6260360-6 (Version None)
Quarter: 2009Q3

REPORT INFORMATION
  Report Type: 
  Country: None (occurrence: None)
  Receive Date: 20090706
  Receipt Date: 20090626
  Transmission Date: 20100115
  Serious: Yes (Life-Threatening, Hospitalization)
  Sender: FDA-Public Use
  Company Number: 09GB002204

PATIENT
  Age: 29 Year
  Sex: Male

DRUGS (5)
  1. IBUPROFEN [Suspect]
     Indication: ABDOMINAL PAIN
     Dosage: 400 MG, TID, ORAL
     Route: 048
     Dates: start: 20090605, end: 20090609
  2. ASPIRIN [Suspect]
     Indication: ABDOMINAL PAIN
     Dosage: 300 MG, TID, ORAL
     Route: 048
     Dates: start: 20090610, end: 20090612
  3. CITALOPRAM HYDROBROMIDE [Suspect]
     Indication: DEPRESSION
     Dosage: 20 MG, QD, ORAL
     Route: 048
     Dates: start: 20090105, end: 20090616
  4. BECONASE AQUEOUS(BECLOMETASONE DIPROPIONATE) [Concomitant]
  5. CETIRIZINE [Concomitant]

REACTIONS (1)
  - GASTRIC ULCER PERFORATION [None]
